FAERS Safety Report 16207131 (Version 1)
Quarter: 2019Q2

REPORT INFORMATION
  Report Type: Spontaneous
  Country: ES (occurrence: ES)
  Receive Date: 20190417
  Receipt Date: 20190417
  Transmission Date: 20190711
  Serious: Yes (Other)
  Sender: FDA-Public Use
  Company Number: ES-ASTRAZENECA-2019SE55246

PATIENT
  Age: 54 Year
  Sex: Male

DRUGS (14)
  1. ZOLEDRONATE [Suspect]
     Active Substance: ZOLEDRONIC ACID
     Indication: CANCER PAIN
     Dosage: UNK, 1X/4 WEEKS
     Route: 065
  2. PAROXETINE. [Concomitant]
     Active Substance: PAROXETINE
     Indication: PRODUCT USED FOR UNKNOWN INDICATION
     Route: 065
  3. PREGABALIN. [Suspect]
     Active Substance: PREGABALIN
     Indication: CANCER PAIN
     Dosage: 150 UNK, EVERY 12 H
     Route: 065
  4. OXYCODONE [Suspect]
     Active Substance: OXYCODONE
     Indication: CANCER PAIN
     Route: 065
  5. NAPROXEN. [Suspect]
     Active Substance: NAPROXEN
     Indication: CANCER PAIN
     Dosage: 500 UNK, EVERY 12 H
     Route: 065
  6. KETAMINE [Suspect]
     Active Substance: KETAMINE
     Indication: CANCER PAIN
     Route: 065
  7. DULOXETINE. [Suspect]
     Active Substance: DULOXETINE
     Indication: CANCER PAIN
     Route: 065
  8. DEXAMETHASONE. [Concomitant]
     Active Substance: DEXAMETHASONE
     Indication: PRODUCT USED FOR UNKNOWN INDICATION
     Route: 065
  9. PEMETREXED. [Concomitant]
     Active Substance: PEMETREXED
     Indication: METASTASES TO BONE
  10. MEGESTROL ACETATE. [Concomitant]
     Active Substance: MEGESTROL ACETATE
     Indication: PRODUCT USED FOR UNKNOWN INDICATION
     Route: 065
  11. FENTANYL. [Suspect]
     Active Substance: FENTANYL
     Dosage: UNKNOWN (BARELY NECESSARY)
     Route: 045
  12. BACLOFEN. [Suspect]
     Active Substance: BACLOFEN
     Indication: CANCER PAIN
     Route: 065
  13. CISPLATIN. [Concomitant]
     Active Substance: CISPLATIN
     Indication: LUNG ADENOCARCINOMA STAGE IV
     Route: 016
  14. OMEPRAZOLE. [Suspect]
     Active Substance: OMEPRAZOLE
     Indication: CANCER PAIN
     Dosage: 20 / 24H
     Route: 048

REACTIONS (16)
  - Sleep apnoea syndrome [Unknown]
  - Fatigue [Unknown]
  - Dysphagia [Unknown]
  - Anxiety [Unknown]
  - Dyspnoea [Unknown]
  - Decreased appetite [Recovering/Resolving]
  - Pulmonary embolism [Unknown]
  - Insomnia [Unknown]
  - Adverse event [Unknown]
  - Delirium [Unknown]
  - Urinary retention [Unknown]
  - Somnolence [Unknown]
  - Depression [Recovering/Resolving]
  - Constipation [Unknown]
  - Vomiting [Unknown]
  - Cognitive disorder [Unknown]
